FAERS Safety Report 5905154-3 (Version None)
Quarter: 2008Q4

REPORT INFORMATION
  Report Type: 
  Country: None (occurrence: None)
  Receive Date: 20081001
  Receipt Date: 20080922
  Transmission Date: 20090506
  Serious: Yes (Hospitalization)
  Sender: FDA-Public Use
  Company Number: FR-WYE-H06136308

PATIENT
  Age: 85 Year
  Sex: Female

DRUGS (1)
  1. CEFIXIME CHEWABLE [Suspect]
     Indication: DRUG USE FOR UNKNOWN INDICATION
     Dosage: 400MG/DAY
     Route: 048
     Dates: start: 20080417, end: 20080422

REACTIONS (2)
  - ERYTHEMA [None]
  - PHOTOSENSITIVITY REACTION [None]
